FAERS Safety Report 12131336 (Version 2)
Quarter: 2016Q2

REPORT INFORMATION
  Report Type: Spontaneous
  Country: JP (occurrence: JP)
  Receive Date: 20160301
  Receipt Date: 20160401
  Transmission Date: 20160815
  Serious: Yes (Death, Life-Threatening, Hospitalization, Other)
  Sender: FDA-Public Use
  Company Number: JP-PFIZER INC-2016109729

PATIENT
  Sex: Male

DRUGS (6)
  1. FAMOTIDINE. [Suspect]
     Active Substance: FAMOTIDINE
     Indication: GASTRIC ULCER
     Dosage: 1 DF, 2X/DAY
     Route: 048
     Dates: start: 20151102, end: 20151103
  2. SEVOFLURANE MYLAN [Suspect]
     Active Substance: SEVOFLURANE
     Indication: SURGERY
     Dosage: UNK
     Route: 055
     Dates: start: 20151029, end: 20151029
  3. PROPOFOL. [Suspect]
     Active Substance: PROPOFOL
     Indication: SEDATIVE THERAPY
  4. CADUET [Suspect]
     Active Substance: AMLODIPINE BESYLATE\ATORVASTATIN CALCIUM
     Indication: HYPERTENSION
     Dosage: 1 DF, 1X/DAY
     Route: 048
     Dates: start: 20151028, end: 20151029
  5. PROPOFOL. [Suspect]
     Active Substance: PROPOFOL
     Indication: SURGERY
     Dosage: UNK
     Route: 042
     Dates: start: 20151029, end: 20151104
  6. ESLAX [Suspect]
     Active Substance: ROCURONIUM BROMIDE
     Indication: SURGERY
     Dosage: UNK
     Route: 042
     Dates: start: 20151029, end: 20151029

REACTIONS (9)
  - Rhabdomyolysis [Recovered/Resolved with Sequelae]
  - Septic shock [Recovered/Resolved with Sequelae]
  - Circulatory collapse [Unknown]
  - Infection [Recovered/Resolved with Sequelae]
  - Hypoxic-ischaemic encephalopathy [Not Recovered/Not Resolved]
  - Acute kidney injury [Fatal]
  - Pyrexia [Recovered/Resolved]
  - Altered state of consciousness [Not Recovered/Not Resolved]
  - Brain oedema [Not Recovered/Not Resolved]

NARRATIVE: CASE EVENT DATE: 20151031
